FAERS Safety Report 18316058 (Version 1)
Quarter: 2020Q3

REPORT INFORMATION
  Report Type: Other
  Country: CA (occurrence: CA)
  Receive Date: 20200927
  Receipt Date: 20200927
  Transmission Date: 20201103
  Serious: Yes (Other)
  Sender: FDA-Public Use
  Company Number: CA-CELLTRION INC.-2020CA027145

PATIENT

DRUGS (8)
  1. VENTOLIN [Concomitant]
     Active Substance: ALBUTEROL SULFATE
  2. SALBUTAMOL [Concomitant]
     Active Substance: ALBUTEROL
  3. LANTUS [Concomitant]
     Active Substance: INSULIN GLARGINE
  4. INSULIN HUMAN [Concomitant]
     Active Substance: INSULIN HUMAN
  5. ATROVENT [Concomitant]
     Active Substance: IPRATROPIUM BROMIDE
  6. RITUXIMAB (UNKNOWN) [Suspect]
     Active Substance: RITUXIMAB
     Indication: CRYOGLOBULINAEMIA
     Route: 042
  7. RITUXIMAB (UNKNOWN) [Suspect]
     Active Substance: RITUXIMAB
     Indication: BLOOD DISORDER
  8. PREDNISONE. [Concomitant]
     Active Substance: PREDNISONE

REACTIONS (3)
  - Peritoneal disorder [Unknown]
  - Intentional product use issue [Unknown]
  - Off label use [Unknown]
